FAERS Safety Report 21749269 (Version 3)
Quarter: 2023Q1

REPORT INFORMATION
  Report Type: Spontaneous
  Country: US (occurrence: US)
  Receive Date: 20221219
  Receipt Date: 20230125
  Transmission Date: 20230417
  Serious: No
  Sender: FDA-Public Use
  Company Number: US-BIOGEN-2017BI00362389

PATIENT
  Age: 58 Year
  Sex: Female

DRUGS (6)
  1. TECFIDERA [Suspect]
     Active Substance: DIMETHYL FUMARATE
     Indication: Multiple sclerosis
     Dosage: STARTING DOSE
     Route: 050
     Dates: start: 20170217, end: 20170218
  2. TECFIDERA [Suspect]
     Active Substance: DIMETHYL FUMARATE
     Dosage: TAKE 1 CAPSULE TWICE DAILY
     Route: 050
     Dates: start: 20170219
  3. TECFIDERA [Suspect]
     Active Substance: DIMETHYL FUMARATE
     Route: 050
     Dates: start: 20170210
  4. IBUPROFEN [Suspect]
     Active Substance: IBUPROFEN
     Indication: Product used for unknown indication
     Route: 050
  5. ASPIRIN [Suspect]
     Active Substance: ASPIRIN
     Indication: Flushing
     Route: 050
  6. CELECOXIB [Suspect]
     Active Substance: CELECOXIB
     Indication: Product used for unknown indication
     Dosage: GENERIC CELECOXIB
     Route: 050

REACTIONS (5)
  - Liver function test decreased [Not Recovered/Not Resolved]
  - Liver disorder [Unknown]
  - Abdominal discomfort [Unknown]
  - Diarrhoea [Unknown]
  - Flushing [Recovered/Resolved]

NARRATIVE: CASE EVENT DATE: 20170219
